FAERS Safety Report 18036891 (Version 1)
Quarter: 2020Q3

REPORT INFORMATION
  Report Type: Report from Study
  Country: None (occurrence: US)
  Receive Date: 20200717
  Receipt Date: 20200717
  Transmission Date: 20201103
  Serious: Yes (Hospitalization, Other)
  Sender: FDA-Public Use
  Company Number: US-ABBVIE-20K-163-3482831-00

PATIENT
  Sex: Male

DRUGS (1)
  1. IMBRUVICA [Suspect]
     Active Substance: IBRUTINIB
     Indication: CHRONIC LYMPHOCYTIC LEUKAEMIA
     Route: 048
     Dates: start: 20180712

REACTIONS (8)
  - Nausea [Unknown]
  - Pneumonia [Unknown]
  - Thyroid mass [Unknown]
  - Urinary retention [Unknown]
  - Rash pruritic [Unknown]
  - Vomiting [Unknown]
  - Foot fracture [Unknown]
  - Migraine [Unknown]
